FAERS Safety Report 24090086 (Version 1)
Quarter: 2024Q3

REPORT INFORMATION
  Report Type: Spontaneous
  Country: US (occurrence: US)
  Receive Date: 20240715
  Receipt Date: 20240715
  Transmission Date: 20241016
  Serious: No
  Sender: APOTEX
  Company Number: US-APOTEX-2024AP007870

PATIENT
  Sex: Male

DRUGS (3)
  1. PAXIL CR [Suspect]
     Active Substance: PAROXETINE HYDROCHLORIDE
     Indication: Product used for unknown indication
     Dosage: UNK
     Route: 065
  2. PAROXETINE [Suspect]
     Active Substance: PAROXETINE
     Indication: Product used for unknown indication
     Dosage: 45 MILLIGRAM, Q.O.D.
     Route: 065
  3. PAROXETINE [Suspect]
     Active Substance: PAROXETINE
     Dosage: 30 MILLIGRAM, Q.O.D.
     Route: 065

REACTIONS (5)
  - Neurological symptom [Not Recovered/Not Resolved]
  - Product availability issue [Unknown]
  - Agitation [Not Recovered/Not Resolved]
  - Withdrawal syndrome [Not Recovered/Not Resolved]
  - Drug ineffective [Unknown]
